FAERS Safety Report 6717022-8 (Version None)
Quarter: 2010Q2

REPORT INFORMATION
  Report Type: 
  Country: None (occurrence: None)
  Receive Date: 20100510
  Receipt Date: 20100503
  Transmission Date: 20101027
  Serious: No
  Sender: FDA-Public Use
  Company Number: US-JNJFOC-20100405747

PATIENT
  Sex: Female
  Weight: 79.38 kg

DRUGS (12)
  1. FENTANYL CITRATE [Suspect]
     Indication: PROCTALGIA
     Route: 062
  2. FENTANYL CITRATE [Suspect]
     Indication: VULVOVAGINAL PAIN
     Route: 062
  3. FENTANYL CITRATE [Suspect]
     Indication: SPINAL CORD INJURY
     Route: 062
  4. FENTANYL CITRATE [Suspect]
     Indication: PAIN
     Route: 062
  5. FENTANYL CITRATE [Suspect]
     Dosage: NDC# 0781-724455
     Route: 062
  6. FENTANYL CITRATE [Suspect]
     Dosage: NDC# 0781-724455
     Route: 062
  7. FENTANYL CITRATE [Suspect]
     Dosage: NDC# 0781-724455
     Route: 062
  8. FENTANYL CITRATE [Suspect]
     Dosage: NDC# 0781-724455
     Route: 062
  9. FENTANYL-100 [Suspect]
     Indication: SPINAL CORD INJURY
     Dosage: NDC# 0781-724455
     Route: 062
  10. XANAX [Concomitant]
     Indication: ANXIETY DISORDER
     Route: 048
     Dates: start: 19670101
  11. ZOLOFT [Concomitant]
     Indication: DEPRESSION
     Route: 048
  12. NUCYNTA [Concomitant]
     Indication: PAIN
     Route: 048

REACTIONS (11)
  - APPLICATION SITE DISCOLOURATION [None]
  - APPLICATION SITE PRURITUS [None]
  - APPLICATION SITE SCAR [None]
  - APPLICATION SITE URTICARIA [None]
  - APPLICATION SITE VESICLES [None]
  - DRUG ADMINISTERED AT INAPPROPRIATE SITE [None]
  - DRUG INEFFECTIVE [None]
  - FAECALOMA [None]
  - INCORRECT DOSE ADMINISTERED [None]
  - VULVOVAGINAL PAIN [None]
  - WITHDRAWAL SYNDROME [None]
